FAERS Safety Report 9434997 (Version 1)
Quarter: 2013Q3

REPORT INFORMATION
  Report Type: Spontaneous
  Country: PT (occurrence: None)
  Receive Date: 20130730
  Receipt Date: 20130730
  Transmission Date: 20140515
  Serious: Yes (Other)
  Sender: FDA-Public Use
  Company Number: AUR-APL-2013-06319

PATIENT
  Age: 74 Year
  Sex: Male

DRUGS (2)
  1. RAMIPRIL [Suspect]
     Indication: HYPERTENSION
  2. TENORMIN [Suspect]
     Indication: HYPERTENSION

REACTIONS (2)
  - Angina unstable [None]
  - Cough [None]
